FAERS Safety Report 11802201 (Version 3)
Quarter: 2015Q4

REPORT INFORMATION
  Report Type: Spontaneous
  Country: JP (occurrence: JP)
  Receive Date: 20151204
  Receipt Date: 20151228
  Transmission Date: 20160305
  Serious: Yes (Other)
  Sender: FDA-Public Use
  Company Number: JP-PFIZER INC-2015425159

PATIENT
  Age: 43 Year
  Sex: Female

DRUGS (6)
  1. JZOLOFT [Suspect]
     Active Substance: SERTRALINE HYDROCHLORIDE
     Dosage: 25 MG, 3X/DAY
     Route: 048
     Dates: start: 20151202, end: 201512
  2. JZOLOFT [Suspect]
     Active Substance: SERTRALINE HYDROCHLORIDE
     Indication: DEPRESSION
     Dosage: 25 MG, 4X/DAY
     Route: 048
     Dates: start: 20150911, end: 20151101
  3. CONSTAN [Suspect]
     Active Substance: ALPRAZOLAM
     Dosage: 0.4 MG, DAILY
     Route: 048
     Dates: start: 20150819
  4. JZOLOFT [Suspect]
     Active Substance: SERTRALINE HYDROCHLORIDE
     Indication: PANIC DISORDER
     Dosage: 25 MG, 2X/DAY
     Route: 048
     Dates: start: 20150819, end: 20150910
  5. NAUZELIN [Suspect]
     Active Substance: DOMPERIDONE
     Dosage: 10 MG, DAILY
     Route: 048
     Dates: start: 20150819
  6. JZOLOFT [Suspect]
     Active Substance: SERTRALINE HYDROCHLORIDE
     Dosage: 25 MG, 5X/DAY
     Route: 048
     Dates: start: 20151102, end: 20151201

REACTIONS (3)
  - Hypoglycaemia [Recovered/Resolved]
  - Tachycardia [Recovering/Resolving]
  - Ventricular arrhythmia [Recovering/Resolving]

NARRATIVE: CASE EVENT DATE: 20151001
